FAERS Safety Report 8974368 (Version 1)
Quarter: 2012Q4

REPORT INFORMATION
  Report Type: 
  Country: US (occurrence: US)
  Receive Date: 20121219
  Receipt Date: 20121219
  Transmission Date: 20130627
  Serious: Yes (Hospitalization, Disabling, Other)
  Sender: FDA-Public Use
  Company Number: US-PURDUE-USA-2012-0096874

PATIENT
  Age: 56 Year
  Sex: Male

DRUGS (3)
  1. OXYCODONE HYDROCHLORIDE (SIMILAR TO NDA 20-553) [Suspect]
     Indication: PRODUCT USED FOR UNKNOWN INDICATION
     Route: 048
  2. XANAX [Suspect]
     Indication: PRODUCT USED FOR UNKNOWN INDICATION
  3. KLONOPIN [Concomitant]
     Indication: PRODUCT USED FOR UNKNOWN INDICATION

REACTIONS (3)
  - Intentional overdose [Not Recovered/Not Resolved]
  - Quadriplegia [Not Recovered/Not Resolved]
  - Cervical myelopathy [Not Recovered/Not Resolved]
